FAERS Safety Report 12627474 (Version 2)
Quarter: 2016Q3

REPORT INFORMATION
  Report Type: Report from Study
  Country: US (occurrence: US)
  Receive Date: 20160805
  Receipt Date: 20160830
  Transmission Date: 20161109
  Serious: No
  Sender: FDA-Public Use
  Company Number: US-ELI_LILLY_AND_COMPANY-US201608003166

PATIENT
  Sex: Male

DRUGS (5)
  1. LANTUS [Concomitant]
     Active Substance: INSULIN GLARGINE
     Dosage: 56 U, EACH EVENING
  2. HUMALOG [Suspect]
     Active Substance: INSULIN LISPRO
     Dosage: 20 U, TID
     Route: 065
  3. LANTUS [Concomitant]
     Active Substance: INSULIN GLARGINE
     Dosage: 50 U, EACH EVENING
  4. HUMALOG [Suspect]
     Active Substance: INSULIN LISPRO
     Indication: DIABETES MELLITUS
     Dosage: 20 U, TID
     Route: 065
     Dates: start: 2006
  5. HUMALOG [Suspect]
     Active Substance: INSULIN LISPRO
     Dosage: 20 U, TID
     Route: 065

REACTIONS (5)
  - Blood glucose abnormal [Unknown]
  - Wrong technique in product usage process [Unknown]
  - Incorrect product storage [Unknown]
  - Incorrect dose administered [Unknown]
  - Blood glucose increased [Unknown]
